FAERS Safety Report 4804423-8 (Version None)
Quarter: 2005Q4

REPORT INFORMATION
  Report Type: 
  Country: None (occurrence: None)
  Receive Date: 20051014
  Receipt Date: 20051005
  Transmission Date: 20060501
  Serious: Yes (Hospitalization, Disabling, Other)
  Sender: FDA-Public Use
  Company Number: 2005139525

PATIENT
  Sex: Female
  Weight: 46.2669 kg

DRUGS (11)
  1. NEURONTIN [Suspect]
     Indication: NEUROPATHY PERIPHERAL
     Dosage: 900 MG (300 MG, 3 IN 1 D), ORAL
     Route: 048
  2. PLAVIX [Concomitant]
  3. AMITRIPTYLINE HCL [Concomitant]
  4. METOPROLOL TARTRATE [Concomitant]
  5. FOLTX (CYANOCOBALAMIN, FOLIC ACID, PYRIDOXINE) [Concomitant]
  6. INSULIN , REGULAR (INSULIN) [Concomitant]
  7. INSULIN [Concomitant]
  8. ALTACE [Concomitant]
  9. LIPITOR [Concomitant]
  10. DETROL [Concomitant]
  11. PREMARIN [Concomitant]

REACTIONS (6)
  - CEREBROVASCULAR ACCIDENT [None]
  - ECONOMIC PROBLEM [None]
  - HYPOKINESIA [None]
  - MYOCARDIAL INFARCTION [None]
  - TRANSIENT ISCHAEMIC ATTACK [None]
  - TREATMENT NONCOMPLIANCE [None]
